FAERS Safety Report 21796750 (Version 4)
Quarter: 2024Q1

REPORT INFORMATION
  Report Type: Other
  Country: AU (occurrence: None)
  Receive Date: 20221230
  Receipt Date: 20240320
  Transmission Date: 20240409
  Serious: Yes (Hospitalization, Disabling)
  Sender: FDA-Public Use
  Company Number: AU-ROCHE-3252947

PATIENT
  Sex: Female

DRUGS (1)
  1. OCREVUS [Suspect]
     Active Substance: OCRELIZUMAB
     Indication: Multiple sclerosis
     Route: 042
     Dates: start: 20230314, end: 20230314

REACTIONS (3)
  - Pneumonia [Recovering/Resolving]
  - Mobility decreased [Recovering/Resolving]
  - Treatment delayed [Unknown]
